FAERS Safety Report 14564824 (Version 1)
Quarter: 2018Q1

REPORT INFORMATION
  Report Type: Spontaneous
  Country: FR (occurrence: FR)
  Receive Date: 20180223
  Receipt Date: 20180223
  Transmission Date: 20180509
  Serious: Yes (Other)
  Sender: FDA-Public Use
  Company Number: FR-BAXTER-2018BAX005533

PATIENT

DRUGS (2)
  1. PHOXILIUM 1.2 MMOL/L PHOSPHATE SOLUTION FOR HAEMODIALYSIS/HAEMOFILTRAT [Suspect]
     Active Substance: CALCIUM CL\MAGNESIUM CL\POTASSIUM CL\SODIUM BICAR\SODIUM CL\SODIUM PHOSPHATE,DIB
     Indication: HAEMODIALYSIS
     Route: 010
     Dates: end: 20180212
  2. DEVICE [Suspect]
     Active Substance: DEVICE

REACTIONS (2)
  - Haemorrhage [Unknown]
  - Device leakage [Unknown]

NARRATIVE: CASE EVENT DATE: 20180212
